FAERS Safety Report 23693254 (Version 1)
Quarter: 2024Q2

REPORT INFORMATION
  Report Type: Spontaneous
  Country: UA (occurrence: UA)
  Receive Date: 20240401
  Receipt Date: 20240401
  Transmission Date: 20240716
  Serious: Yes (Other)
  Sender: FDA-Public Use
  Company Number: UA-MYLANLABS-2024M1028641

PATIENT
  Age: 44 Year
  Sex: Male

DRUGS (2)
  1. DOLUTEGRAVIR\LAMIVUDINE\TENOFOVIR DISOPROXIL FUMARATE [Suspect]
     Active Substance: DOLUTEGRAVIR\LAMIVUDINE\TENOFOVIR DISOPROXIL FUMARATE
     Indication: HIV infection CDC Group IV subgroup E
     Dosage: 1 DOSAGE FORM, QD
     Route: 048
     Dates: start: 20220815, end: 20240305
  2. EFAVIRENZ, LAMIVUDINE AND TENOFOVIR DISOPROXIL [Suspect]
     Active Substance: EFAVIRENZ\LAMIVUDINE\TENOFOVIR DISOPROXIL FUMARATE
     Indication: HIV infection CDC Group IV subgroup E
     Dosage: 1 DOSAGE FORM, QD
     Route: 048
     Dates: start: 20211112, end: 20220815

REACTIONS (1)
  - Nephropathy toxic [Not Recovered/Not Resolved]

NARRATIVE: CASE EVENT DATE: 20230801
